FAERS Safety Report 7558553-0 (Version None)
Quarter: 2011Q2

REPORT INFORMATION
  Report Type: 
  Country: None (occurrence: None)
  Receive Date: 20110621
  Receipt Date: 20110614
  Transmission Date: 20111010
  Serious: Yes (Hospitalization)
  Sender: FDA-Public Use
  Company Number: DE-BRISTOL-MYERS SQUIBB COMPANY-15679715

PATIENT
  Age: 21 Year
  Sex: Female
  Weight: 115 kg

DRUGS (3)
  1. CETIRIZINE HCL [Suspect]
     Indication: SEASONAL ALLERGY
     Dates: start: 20110301, end: 20110407
  2. ANTIBIOTICS [Suspect]
     Indication: BRONCHITIS
     Dates: start: 20110201, end: 20110301
  3. ABILIFY [Suspect]
     Indication: SCHIZOAFFECTIVE DISORDER
     Dosage: PATERNAL DOSE: 5-10 MG FROM APR2010 TO APR2011
     Route: 048
     Dates: start: 20090601, end: 20110407

REACTIONS (3)
  - PREGNANCY [None]
  - VAGINAL HAEMORRHAGE [None]
  - DRUG EXPOSURE DURING PREGNANCY [None]
